FAERS Safety Report 9278345 (Version 1)
Quarter: 2013Q2

REPORT INFORMATION
  Report Type: Spontaneous
  Country: US (occurrence: US)
  Receive Date: 20130508
  Receipt Date: 20130508
  Transmission Date: 20140414
  Serious: Yes (Hospitalization)
  Sender: FDA-Public Use
  Company Number: US-BAYER-2013-056226

PATIENT
  Age: 23 Year
  Sex: Male

DRUGS (3)
  1. ACETYLSALICYLIC ACID [Suspect]
     Indication: HEADACHE
  2. METHYLENEDIOXYMETHAMPHETAMINE [Suspect]
  3. MARIJUANA [Concomitant]

REACTIONS (1)
  - Subarachnoid haemorrhage [Recovered/Resolved]
